FAERS Safety Report 14565410 (Version 1)
Quarter: 2018Q1

REPORT INFORMATION
  Report Type: Spontaneous
  Country: FR (occurrence: FR)
  Receive Date: 20180223
  Receipt Date: 20180223
  Transmission Date: 20180509
  Serious: Yes (Hospitalization, Congenital Anomaly)
  Sender: FDA-Public Use
  Company Number: FR-CIPLA LTD.-2018FR06242

PATIENT

DRUGS (5)
  1. ESCITALOPRAM [Suspect]
     Active Substance: ESCITALOPRAM OXALATE
     Dosage: 10 MG, UNK
     Route: 064
  2. DONORMYL                           /00334102/ [Suspect]
     Active Substance: DOXYLAMINE SUCCINATE
     Dosage: UNK
     Route: 064
  3. STILNOX [Suspect]
     Active Substance: ZOLPIDEM TARTRATE
     Dosage: UNK
     Route: 064
  4. XANAX [Suspect]
     Active Substance: ALPRAZOLAM
     Dosage: UNK
     Route: 064
  5. SERESTA [Suspect]
     Active Substance: OXAZEPAM
     Dosage: UNK
     Route: 064

REACTIONS (3)
  - Neurodevelopmental disorder [Not Recovered/Not Resolved]
  - Neonatal behavioural syndrome [Recovered/Resolved]
  - Atrial septal defect [Not Recovered/Not Resolved]

NARRATIVE: CASE EVENT DATE: 201612
